FAERS Safety Report 11773303 (Version 1)
Quarter: 2015Q4

REPORT INFORMATION
  Report Type: Spontaneous
  Country: FR (occurrence: FR)
  Receive Date: 20151124
  Receipt Date: 20151124
  Transmission Date: 20160304
  Serious: Yes (Other)
  Sender: FDA-Public Use
  Company Number: FR-BAYER-2015-473638

PATIENT
  Age: 75 Year
  Sex: Female

DRUGS (3)
  1. BACTRIM-FORTE [Concomitant]
     Active Substance: SULFAMETHOXAZOLE\TRIMETHOPRIM
     Dosage: 1 DF, TID
     Route: 048
     Dates: start: 20150924, end: 20151028
  2. CEFTRIAXONE SODIUM. [Concomitant]
     Active Substance: CEFTRIAXONE SODIUM
     Dosage: 1 G, QD
     Route: 058
     Dates: start: 20150924, end: 20151028
  3. ULTRAVIST [Suspect]
     Active Substance: IOPROMIDE
     Dosage: 1 DF, ONCE
     Route: 042
     Dates: start: 20151007, end: 20151007

REACTIONS (5)
  - Eosinophil count increased [Recovered/Resolved]
  - Blood creatinine increased [Recovered/Resolved]
  - Rash erythematous [Recovered/Resolved]
  - Pyrexia [Recovered/Resolved]
  - Pruritus [Recovered/Resolved]

NARRATIVE: CASE EVENT DATE: 20151007
